FAERS Safety Report 9370902 (Version 1)
Quarter: 2013Q2

REPORT INFORMATION
  Report Type: Spontaneous
  Country: US (occurrence: US)
  Receive Date: 20130627
  Receipt Date: 20130627
  Transmission Date: 20140414
  Serious: No
  Sender: FDA-Public Use
  Company Number: US-009507513-1306USA008887

PATIENT
  Sex: Female

DRUGS (9)
  1. ZETIA [Suspect]
     Indication: BLOOD CHOLESTEROL INCREASED
     Dosage: 10 MG, QD
     Route: 048
  2. BYSTOLIC [Concomitant]
  3. LOSARTAN POTASSIUM [Concomitant]
     Route: 048
  4. SIMVASTATIN [Concomitant]
     Route: 048
  5. LASIX (FUROSEMIDE) [Concomitant]
  6. SPIRIVA [Concomitant]
  7. ADVAIR [Concomitant]
  8. BROVANA [Concomitant]
  9. LECITHIN [Concomitant]

REACTIONS (4)
  - Oedema mouth [Recovered/Resolved]
  - Swelling face [Recovered/Resolved]
  - Swollen tongue [Recovered/Resolved]
  - Rash [Recovered/Resolved]
